FAERS Safety Report 7789148-1 (Version None)
Quarter: 2011Q3

REPORT INFORMATION
  Report Type: 
  Country: None (occurrence: None)
  Receive Date: 20110930
  Receipt Date: 20110922
  Transmission Date: 20111222
  Serious: Yes (Hospitalization)
  Sender: FDA-Public Use
  Company Number: JP-JNJFOC-20110911133

PATIENT
  Age: 86 Year
  Sex: Female

DRUGS (3)
  1. TRAMADOL HYDROCHLORIDE/ACETAMINOPHEN [Suspect]
     Dosage: 1 PER 1 DAY
     Route: 065
     Dates: start: 20110825, end: 20110908
  2. TRAMADOL HYDROCHLORIDE/ACETAMINOPHEN [Suspect]
     Indication: BACK PAIN
     Dosage: 1 PER 1 DAY
     Route: 065
     Dates: start: 20110811, end: 20110824
  3. MOTILIUM [Concomitant]
     Indication: PROPHYLAXIS OF NAUSEA AND VOMITING
     Dosage: 1 PER 1 DAY
     Route: 048
     Dates: start: 20110811, end: 20110825

REACTIONS (2)
  - DELIRIUM [None]
  - ENTEROCOLITIS [None]
